FAERS Safety Report 13040430 (Version 1)
Quarter: 2016Q4

REPORT INFORMATION
  Report Type: Spontaneous
  Country: US (occurrence: US)
  Receive Date: 20161219
  Receipt Date: 20161219
  Transmission Date: 20170207
  Serious: No
  Sender: FDA-Public Use
  Company Number: None

PATIENT
  Age: 46 Year
  Sex: Female

DRUGS (1)
  1. COPAXONE [Suspect]
     Active Substance: GLATIRAMER ACETATE
     Indication: MULTIPLE SCLEROSIS

REACTIONS (5)
  - Hyperhidrosis [None]
  - Nausea [None]
  - Presyncope [None]
  - Flushing [None]
  - Nonspecific reaction [None]

NARRATIVE: CASE EVENT DATE: 20161219
